FAERS Safety Report 13832364 (Version 1)
Quarter: 2017Q3

REPORT INFORMATION
  Report Type: Spontaneous
  Country: US (occurrence: US)
  Receive Date: 20170803
  Receipt Date: 20170803
  Transmission Date: 20171127
  Serious: No
  Sender: FDA-Public Use
  Company Number: US-ROCHE-703482

PATIENT
  Sex: Female
  Weight: 79.5 kg

DRUGS (6)
  1. BONIVA [Suspect]
     Active Substance: IBANDRONATE SODIUM
     Indication: OSTEOPOROSIS
     Route: 048
     Dates: start: 20090829, end: 201002
  2. LISINOPRIL. [Concomitant]
     Active Substance: LISINOPRIL
     Route: 065
  3. ALLI [Concomitant]
     Active Substance: ORLISTAT
     Route: 065
  4. ALENDRONATE SODIUM. [Concomitant]
     Active Substance: ALENDRONATE SODIUM
     Route: 065
     Dates: start: 201003, end: 201004
  5. ZINC. [Concomitant]
     Active Substance: ZINC
     Route: 065
  6. BONIVA [Suspect]
     Active Substance: IBANDRONATE SODIUM
     Route: 048

REACTIONS (3)
  - Fracture [Unknown]
  - Joint crepitation [Unknown]
  - Pain [Not Recovered/Not Resolved]
